FAERS Safety Report 8984820 (Version 1)
Quarter: 2012Q4

REPORT INFORMATION
  Report Type: 
  Country: US (occurrence: US)
  Receive Date: 20121226
  Receipt Date: 20121226
  Transmission Date: 20130627
  Serious: No
  Sender: FDA-Public Use
  Company Number: US-BAYER-2012-130963

PATIENT
  Age: 43 Year
  Sex: Female
  Weight: 68 kg

DRUGS (7)
  1. BETASERON [Suspect]
     Dosage: UNK
     Dates: end: 2010
  2. BETASERON [Suspect]
     Dosage: 0.3 mg, QOD
     Route: 058
     Dates: start: 20121213
  3. ADVIL PM [Concomitant]
     Dosage: UNK
     Route: 048
  4. TYLENOL 8 HOUR [Concomitant]
     Route: 048
  5. VITAMIN B12 NOS [Concomitant]
     Dosage: 500 MCG
     Route: 048
  6. IRON [Concomitant]
     Route: 048
  7. CALCIUM +VIT D [Concomitant]

REACTIONS (1)
  - Injection site reaction [Unknown]
